FAERS Safety Report 4846303-8 (Version None)
Quarter: 2005Q4

REPORT INFORMATION
  Report Type: 
  Country: None (occurrence: None)
  Receive Date: 20051206
  Receipt Date: 20051115
  Transmission Date: 20060501
  Serious: Yes (Hospitalization)
  Sender: FDA-Public Use
  Company Number: JP-ROCHE-425224

PATIENT
  Age: 19 Year
  Sex: Female

DRUGS (7)
  1. TAMIFLU [Suspect]
     Indication: INFLUENZA
     Route: 048
     Dates: start: 20050224, end: 20050225
  2. TAMIFLU [Suspect]
     Route: 048
     Dates: start: 20050226, end: 20050226
  3. LOXONIN [Concomitant]
     Route: 048
     Dates: start: 20050224, end: 20050226
  4. UNCLASSIFIED DRUG [Concomitant]
     Dosage: DRUG NAME REPORTED AS MITINO
     Route: 055
     Dates: start: 20050224, end: 20050226
  5. LEFTOSE [Concomitant]
     Route: 048
     Dates: start: 20050224, end: 20050226
  6. HY-STAMIN [Concomitant]
     Route: 030
     Dates: start: 20050224, end: 20050226
  7. IDOMETHINE [Concomitant]
     Route: 054
     Dates: start: 20050224, end: 20050224

REACTIONS (3)
  - AMNESIA [None]
  - DEPRESSED LEVEL OF CONSCIOUSNESS [None]
  - PARAPLEGIA [None]
